FAERS Safety Report 22352725 (Version 1)
Quarter: 2023Q2

REPORT INFORMATION
  Report Type: Spontaneous
  Country: US (occurrence: US)
  Receive Date: 20230523
  Receipt Date: 20230523
  Transmission Date: 20230722
  Serious: No
  Sender: FDA-Public Use
  Company Number: US-ABBVIE-4773105

PATIENT

DRUGS (2)
  1. SKYRIZI [Suspect]
     Active Substance: RISANKIZUMAB-RZAA
     Indication: Product used for unknown indication
     Route: 058
  2. REMICADE [Concomitant]
     Active Substance: INFLIXIMAB
     Indication: Product used for unknown indication

REACTIONS (5)
  - Insomnia [Unknown]
  - Fatigue [Unknown]
  - Mobility decreased [Unknown]
  - Depressed mood [Not Recovered/Not Resolved]
  - Pain [Unknown]
